FAERS Safety Report 6059283-7 (Version None)
Quarter: 2009Q1

REPORT INFORMATION
  Report Type: 
  Country: None (occurrence: None)
  Receive Date: 20090130
  Receipt Date: 20090119
  Transmission Date: 20090719
  Serious: Yes (Other)
  Sender: FDA-Public Use
  Company Number: FR-ROCHE-577603

PATIENT
  Sex: Female
  Weight: 70 kg

DRUGS (1)
  1. CAPECITABINE [Suspect]
     Indication: COLORECTAL CANCER
     Dosage: CUMULATIVE DOSE : 34 800 MG; PERMANENTLY DISCONTINUED
     Route: 048
     Dates: start: 20080513, end: 20080528

REACTIONS (1)
  - FEMALE GENITAL TRACT FISTULA [None]
